FAERS Safety Report 21260140 (Version 1)
Quarter: 2022Q3

REPORT INFORMATION
  Report Type: Spontaneous
  Country: DE (occurrence: DE)
  Receive Date: 20220826
  Receipt Date: 20220826
  Transmission Date: 20221026
  Serious: Yes (Other)
  Sender: FDA-Public Use
  Company Number: DE-002147023-NVSC2019DE095417

PATIENT
  Sex: Male
  Weight: 86 kg

DRUGS (3)
  1. VALSARTAN [Suspect]
     Active Substance: VALSARTAN
     Indication: Product used for unknown indication
     Dosage: 40 MG, QD (ONCE DAILY IN THE MORNING)
     Route: 065
     Dates: start: 201705
  2. VALSARTAN [Suspect]
     Active Substance: VALSARTAN
     Dosage: 80 MG, QD, (HALF OF A DOSE IN THE MORNING )
     Route: 065
  3. VALSARTAN [Suspect]
     Active Substance: VALSARTAN
     Indication: Hypertension
     Dosage: 80 MG, QD
     Route: 065
     Dates: start: 2016, end: 2019

REACTIONS (14)
  - Mitral valve incompetence [Unknown]
  - Glaucoma [Unknown]
  - Poisoning [Unknown]
  - Fear of disease [Unknown]
  - Nervousness [Unknown]
  - Restlessness [Unknown]
  - Diastolic dysfunction [Unknown]
  - Psoriasis [Unknown]
  - Hyperlipidaemia [Unknown]
  - Fall [Unknown]
  - Arthralgia [Unknown]
  - Quality of life decreased [Unknown]
  - Insomnia [Unknown]
  - Psychological trauma [Unknown]

NARRATIVE: CASE EVENT DATE: 20170601
